FAERS Safety Report 7622352-1 (Version None)
Quarter: 2011Q3

REPORT INFORMATION
  Report Type: 
  Country: None (occurrence: None)
  Receive Date: 20110715
  Receipt Date: 20110715
  Transmission Date: 20111222
  Serious: No
  Sender: FDA-Public Use
  Company Number: None

PATIENT
  Sex: Female
  Weight: 70.3075 kg

DRUGS (2)
  1. VENLAFAXINE HCL [Suspect]
     Dosage: 75MG THREE QAM PO
     Route: 048
     Dates: start: 20100601, end: 20100901
  2. VENLAFAXINE HCL [Suspect]
     Dosage: 75MG THREE QAM PO
     Route: 048
     Dates: start: 20110101, end: 20110101

REACTIONS (2)
  - PRODUCT SUBSTITUTION ISSUE [None]
  - PALPITATIONS [None]
